FAERS Safety Report 14534902 (Version 6)
Quarter: 2023Q4

REPORT INFORMATION
  Report Type: Spontaneous
  Country: CA (occurrence: CA)
  Receive Date: 20180215
  Receipt Date: 20231031
  Transmission Date: 20240109
  Serious: Yes (Other)
  Sender: FDA-Public Use
  Company Number: CA-PFIZER INC-2016424376

PATIENT
  Age: 49 Year
  Sex: Male

DRUGS (12)
  1. XELJANZ [Suspect]
     Active Substance: TOFACITINIB CITRATE
     Indication: Rheumatoid arthritis
     Dosage: 5MG/BID (2X/DAY)
     Route: 048
     Dates: start: 20160630, end: 201803
  2. XELJANZ [Suspect]
     Active Substance: TOFACITINIB CITRATE
     Dosage: 5 MG, 2X/DAY
     Route: 048
     Dates: start: 201811
  3. METHOTREXATE [Concomitant]
     Active Substance: METHOTREXATE
     Indication: Rheumatoid arthritis
     Dosage: 1 DF, UNKNOWN DOSE
     Route: 065
     Dates: start: 201605, end: 20170316
  4. FOLIC ACID [Concomitant]
     Active Substance: FOLIC ACID
     Dosage: UNK
  5. NAPROXEN [Concomitant]
     Active Substance: NAPROXEN
     Dosage: UNK
  6. JANUMET XR [Concomitant]
     Active Substance: METFORMIN HYDROCHLORIDE\SITAGLIPTIN PHOSPHATE
     Dosage: UNK, 2X/DAY(50-1,000 MG TABLET 1 TABLET(S) TWO TIMES DAILY FOR 100 DAY)
  7. JARDIANCE [Concomitant]
     Active Substance: EMPAGLIFLOZIN
     Dosage: 25 MG, DAILY (1 TABLET 1 TIME DAILY FOR 100 DAYS)
  8. VITAMIN B12 [Concomitant]
     Active Substance: CYANOCOBALAMIN
     Dosage: 1200 UG, DAILY(1 TABLET 1 TIME DAILY FOR 100 DAYS)
  9. ROSUVASTATIN [Concomitant]
     Active Substance: ROSUVASTATIN
     Dosage: 5 MG, 2X/DAY (1 TABLET 2 TIMES DAILY FOR 100 DAYS)
  10. MOMETASONE [Concomitant]
     Active Substance: MOMETASONE
     Dosage: 0.1 %, 1 APPLICATION 1 TIME DAILY, PRN FOR 100 DAYS
  11. VITAMIN D3 [Concomitant]
     Active Substance: CHOLECALCIFEROL
     Dosage: 1000 IU, 2X/DAY, 1000 IU 1 TABLET 2 TIMES DAILY FOR 90 DAYS
  12. RABEPRAZOLE SODIUM [Concomitant]
     Active Substance: RABEPRAZOLE SODIUM
     Dosage: 20 MG, DAILY,  EC 1 TABLET 1 TIME DAILY FOR 100 DAYS

REACTIONS (11)
  - Hepatitis [Unknown]
  - Therapeutic product effect incomplete [Unknown]
  - Liver function test increased [Unknown]
  - Iron deficiency anaemia [Unknown]
  - Psoriasis [Unknown]
  - Arthralgia [Unknown]
  - Pruritus [Recovered/Resolved]
  - Eye infection [Unknown]
  - Antinuclear antibody positive [Unknown]
  - Arthritis [Unknown]
  - Rheumatoid factor positive [Unknown]

NARRATIVE: CASE EVENT DATE: 20180301
